FAERS Safety Report 8406060-5 (Version None)
Quarter: 2012Q2

REPORT INFORMATION
  Report Type: 
  Country: None (occurrence: None)
  Receive Date: 20120529
  Receipt Date: 20081225
  Transmission Date: 20120825
  Serious: Yes (Death, Life-Threatening, Other)
  Sender: FDA-Public Use
  Company Number: 15691-JPN-07-0009

PATIENT
  Age: 72 Year
  Sex: Male
  Weight: 66.6 kg

DRUGS (11)
  1. OPC-41061 (TOLVAPTAN(V4.1)) TABLET [Suspect]
     Indication: OEDEMA DUE TO HEPATIC DISEASE
     Dosage: 15 MG, QD, ORAL
     Route: 048
     Dates: start: 20071030, end: 20071105
  2. LASIX [Concomitant]
  3. LIVACT (AMINO ACIDS NOS) [Concomitant]
  4. MAGLAX (MAGNESIUM OXIDE) [Concomitant]
  5. LACTULOSE [Concomitant]
  6. URSO 250 [Concomitant]
  7. ALLOPURINOL [Concomitant]
  8. LANSOPRAZOLE [Concomitant]
  9. TELEMINSOFT (BISACODYL) [Concomitant]
  10. ALDACTONE [Concomitant]
  11. AMINOLEBAN (AMINO ACIDS NOS) [Concomitant]

REACTIONS (13)
  - HEPATIC CIRRHOSIS [None]
  - DIZZINESS [None]
  - CARDIAC ARREST [None]
  - OESOPHAGEAL VARICES HAEMORRHAGE [None]
  - ASCITES [None]
  - INADEQUATE ANALGESIA [None]
  - SHOCK HAEMORRHAGIC [None]
  - CONDITION AGGRAVATED [None]
  - RENAL IMPAIRMENT [None]
  - HEPATIC ENCEPHALOPATHY [None]
  - HAEMATEMESIS [None]
  - PORTAL HYPERTENSIVE GASTROPATHY [None]
  - HEPATIC FAILURE [None]
